FAERS Safety Report 4343988-X (Version None)
Quarter: 2004Q1

REPORT INFORMATION
  Report Type: 
  Country: None (occurrence: None)
  Receive Date: 20040319
  Receipt Date: 20040114
  Transmission Date: 20041129
  Serious: No
  Sender: FDA-Public Use
  Company Number: US-JNJFOC-20040103212

PATIENT
  Age: 15 Year
  Sex: Female
  Weight: 54.4316 kg

DRUGS (4)
  1. ORTHO EVRA [Suspect]
     Indication: MENSTRUAL DISORDER
     Dosage: 1 DOSE(S), 3 IN 4 WEEK, TRANSDERMAL
     Route: 062
     Dates: start: 20031206, end: 20040105
  2. ZYRTEC [Concomitant]
  3. ADVAIN (ALL OTHER NON-THERAPEUTIC PRODUCTS) [Concomitant]
  4. CORTISONE SHOT (CORTISONE ACETATE) INJECTION [Concomitant]

REACTIONS (2)
  - DYSPNOEA [None]
  - URTICARIA [None]
